FAERS Safety Report 23778925 (Version 3)
Quarter: 2024Q2

REPORT INFORMATION
  Report Type: Spontaneous
  Country: IT (occurrence: None)
  Receive Date: 20240424
  Receipt Date: 20240610
  Transmission Date: 20240715
  Serious: Yes (Hospitalization, Other)
  Sender: FDA-Public Use
  Company Number: IT-ROCHE-3548014

PATIENT
  Age: 68 Year
  Sex: Male

DRUGS (1)
  1. EMICIZUMAB [Suspect]
     Active Substance: EMICIZUMAB
     Indication: Factor VIII deficiency
     Dosage: LAST DOSE OF EMICIZUMAB: 04/DEC/2023
     Route: 065
     Dates: start: 2017

REACTIONS (2)
  - Coronary artery occlusion [Recovered/Resolved]
  - Mass [Unknown]

NARRATIVE: CASE EVENT DATE: 20231209
